FAERS Safety Report 7387896-9 (Version None)
Quarter: 2011Q2

REPORT INFORMATION
  Report Type: 
  Country: None (occurrence: None)
  Receive Date: 20110401
  Receipt Date: 20110318
  Transmission Date: 20111010
  Serious: Yes (Other)
  Sender: FDA-Public Use
  Company Number: AU-AMGEN-AUSSP2011013475

PATIENT
  Age: 73 Year
  Sex: Female

DRUGS (7)
  1. ATACAND [Concomitant]
     Dosage: UNK
  2. FOLIC ACID [Concomitant]
     Dosage: UNK
  3. ENBREL [Suspect]
     Indication: PSORIASIS
     Dosage: 50 MG, WEEKLY
     Route: 058
     Dates: start: 20110121, end: 20110317
  4. METFORMIN HCL [Concomitant]
     Dosage: UNK
  5. XANAX [Concomitant]
     Dosage: UNK
  6. MESALAMINE [Concomitant]
     Indication: COLITIS ULCERATIVE
     Dosage: UNK
  7. METHOTREXATE [Concomitant]
     Dosage: UNK

REACTIONS (9)
  - RASH PUSTULAR [None]
  - MALAISE [None]
  - INJECTION SITE REACTION [None]
  - SKIN HAEMORRHAGE [None]
  - DRUG INEFFECTIVE [None]
  - HEADACHE [None]
  - DIZZINESS [None]
  - PAIN IN EXTREMITY [None]
  - INJECTION SITE CELLULITIS [None]
